FAERS Safety Report 19861314 (Version 1)
Quarter: 2021Q3

REPORT INFORMATION
  Report Type: Spontaneous
  Country: US (occurrence: US)
  Receive Date: 20210920
  Receipt Date: 20210920
  Transmission Date: 20211014
  Serious: No
  Sender: FDA-Public Use
  Company Number: US-SA-2021SA292129

PATIENT
  Age: 61 Year
  Sex: Male
  Weight: 73.18 kg

DRUGS (1)
  1. DUPIXENT [Suspect]
     Active Substance: DUPILUMAB
     Dosage: UNK

REACTIONS (11)
  - Arthropathy [Unknown]
  - Headache [Unknown]
  - Fall [Unknown]
  - Cartilage injury [Unknown]
  - Arthralgia [Unknown]
  - Muscle strain [Unknown]
  - Rotator cuff syndrome [Unknown]
  - Tendon injury [Unknown]
  - Pain in extremity [Unknown]
  - Limb injury [Unknown]
  - Unevaluable event [Unknown]

NARRATIVE: CASE EVENT DATE: 20210615
